FAERS Safety Report 4710384-2 (Version None)
Quarter: 2005Q3

REPORT INFORMATION
  Report Type: 
  Country: None (occurrence: None)
  Receive Date: 20050711
  Receipt Date: 20050701
  Transmission Date: 20060218
  Serious: Yes (Hospitalization)
  Sender: FDA-Public Use
  Company Number: US-BOEHRINGER INGELHEIM PHARMACEUTICALS, INC.-2005-BP-11235BP

PATIENT
  Sex: Male
  Weight: 47.17 kg

DRUGS (1)
  1. TIPRANAVIR / RITONAVIR CAPSULES [Suspect]
     Indication: HIV INFECTION
     Dosage: 1000/400 MG
     Route: 048

REACTIONS (2)
  - BACTERAEMIA [None]
  - CATHETER RELATED INFECTION [None]
